FAERS Safety Report 5232431-4 (Version None)
Quarter: 2007Q1

REPORT INFORMATION
  Report Type: 
  Country: None (occurrence: None)
  Receive Date: 20070207
  Receipt Date: 20070125
  Transmission Date: 20070707
  Serious: Yes (Hospitalization)
  Sender: FDA-Public Use
  Company Number: GXKR2005GB01398

PATIENT
  Sex: Female

DRUGS (1)
  1. INDOMETHACIN [Suspect]
     Indication: DRUG USE FOR UNKNOWN INDICATION
     Dosage: 75 MG, QD, ORAL
     Route: 048
     Dates: end: 20050516

REACTIONS (3)
  - NEPHROPATHY TOXIC [None]
  - PYELONEPHRITIS ACUTE [None]
  - URETERIC OBSTRUCTION [None]
